FAERS Safety Report 8598933 (Version 3)
Quarter: 2014Q1

REPORT INFORMATION
  Report Type: Spontaneous
  Country: US (occurrence: US)
  Receive Date: 20120605
  Receipt Date: 20140108
  Transmission Date: 20141002
  Serious: Yes (Hospitalization, Disabling)
  Sender: FDA-Public Use
  Company Number: US-ASTRAZENECA-2012SE34528

PATIENT
  Age: 54 Year
  Sex: Female
  Weight: 124.7 kg

DRUGS (16)
  1. NEXIUM [Suspect]
     Indication: GASTROOESOPHAGEAL REFLUX DISEASE
     Route: 048
     Dates: start: 2006, end: 2009
  2. NEXIUM [Suspect]
     Indication: GASTROOESOPHAGEAL REFLUX DISEASE
     Route: 048
     Dates: start: 20080814
  3. PRILOSEC [Suspect]
     Indication: GASTROOESOPHAGEAL REFLUX DISEASE
     Route: 048
     Dates: start: 2009, end: 2011
  4. PRILOSEC OTC [Suspect]
     Indication: GASTROOESOPHAGEAL REFLUX DISEASE
     Route: 048
     Dates: start: 2013
  5. PREVACID [Suspect]
     Indication: GASTROOESOPHAGEAL REFLUX DISEASE
     Route: 065
     Dates: start: 2004
  6. PREVACID [Suspect]
     Indication: GASTROOESOPHAGEAL REFLUX DISEASE
     Route: 065
     Dates: start: 20061212
  7. ACIPHEX [Concomitant]
     Indication: GASTROOESOPHAGEAL REFLUX DISEASE
     Dates: start: 2004
  8. PEPTO BISMOL [Concomitant]
     Dates: start: 2005, end: 2006
  9. ROLAIDS [Concomitant]
     Dates: start: 2008
  10. MYLANTA [Concomitant]
     Dates: start: 2009
  11. COREG [Concomitant]
  12. WELLBUTRIN [Concomitant]
  13. DETROL [Concomitant]
     Dates: start: 20080814
  14. ATENOLOL [Concomitant]
     Dates: start: 20080122
  15. OXYBUTYNIN [Concomitant]
     Dates: start: 20071101
  16. TOPAMAX [Concomitant]
     Dates: start: 20060905

REACTIONS (17)
  - Arthropathy [Unknown]
  - Fibromyalgia [Unknown]
  - Limb discomfort [Unknown]
  - Bone disorder [Unknown]
  - Rotator cuff syndrome [Unknown]
  - Exostosis [Unknown]
  - Cyst [Unknown]
  - Osteoporosis [Unknown]
  - Multiple fractures [Unknown]
  - Osteoarthritis [Unknown]
  - Musculoskeletal disorder [Unknown]
  - Arthritis [Unknown]
  - Wrist fracture [Unknown]
  - Depression [Unknown]
  - Vitamin D deficiency [Unknown]
  - Osteochondrosis [Unknown]
  - Tendonitis [Unknown]
